FAERS Safety Report 6761352-0 (Version None)
Quarter: 2010Q2

REPORT INFORMATION
  Report Type: 
  Country: None (occurrence: None)
  Receive Date: 20100607
  Receipt Date: 20100526
  Transmission Date: 20101027
  Serious: Yes (Death)
  Sender: FDA-Public Use
  Company Number: 2010EN000159

PATIENT
  Sex: Male

DRUGS (2)
  1. ABELCET [Suspect]
     Indication: PROPHYLAXIS
     Dosage: IV
     Route: 042
  2. ANTIFUNGALS (ANTIFUNGALS) [Suspect]
     Indication: ASPERGILLOSIS

REACTIONS (2)
  - ASPERGILLOSIS [None]
  - DRUG INEFFECTIVE [None]
